FAERS Safety Report 19820512 (Version 1)
Quarter: 2021Q3

REPORT INFORMATION
  Report Type: Spontaneous
  Country: US (occurrence: US)
  Receive Date: 20210911
  Receipt Date: 20210911
  Transmission Date: 20211014
  Serious: No
  Sender: FDA-Public Use
  Company Number: None

PATIENT
  Age: 28 Year
  Sex: Female
  Weight: 62.55 kg

DRUGS (2)
  1. ORTHO?TRI?CYLIN [Concomitant]
  2. VYVANSE [Suspect]
     Active Substance: LISDEXAMFETAMINE DIMESYLATE
     Indication: ATTENTION DEFICIT HYPERACTIVITY DISORDER
     Dosage: QUANTITY:1 CAPSULE(S);?
     Route: 048

REACTIONS (2)
  - Therapeutic response decreased [None]
  - Product quality issue [None]

NARRATIVE: CASE EVENT DATE: 20210910
